FAERS Safety Report 5841863-2 (Version None)
Quarter: 2008Q3

REPORT INFORMATION
  Report Type: 
  Country: None (occurrence: None)
  Receive Date: 20080731
  Receipt Date: 20080627
  Transmission Date: 20090109
  Serious: No
  Sender: FDA-Public Use
  Company Number: US200806006472

PATIENT
  Age: 69 Year
  Sex: Female

DRUGS (11)
  1. BYETTA [Suspect]
     Indication: TYPE 2 DIABETES MELLITUS
     Dosage: 5 UG, 2/D, SUBCUTANEOUS ; 10 UG, 2/D, SUBCUTANEOUS
     Route: 058
     Dates: start: 20070501, end: 20080501
  2. BYETTA [Suspect]
     Indication: TYPE 2 DIABETES MELLITUS
     Dosage: 5 UG, 2/D, SUBCUTANEOUS ; 10 UG, 2/D, SUBCUTANEOUS
     Route: 058
     Dates: start: 20080501
  3. LANTUS [Concomitant]
  4. HUMALOG [Concomitant]
  5. SYNTHROID [Concomitant]
  6. AVAPRO [Concomitant]
  7. HYDROCHLOROTHIAZIDE [Concomitant]
  8. LEFLUNOMIDE [Concomitant]
  9. METHOTREXATE [Concomitant]
  10. FOLIC ACID [Concomitant]
  11. VITAMINS [Concomitant]

REACTIONS (3)
  - BREAST TENDERNESS [None]
  - HERPES ZOSTER [None]
  - PAIN [None]
